FAERS Safety Report 8347936-7 (Version None)
Quarter: 2012Q2

REPORT INFORMATION
  Report Type: 
  Country: None (occurrence: None)
  Receive Date: 20120509
  Receipt Date: 20090331
  Transmission Date: 20120825
  Serious: No
  Sender: FDA-Public Use
  Company Number: US-BAYER-200914597NA

PATIENT
  Age: 41 Year
  Sex: Female

DRUGS (4)
  1. VITAMIN TAB [Concomitant]
  2. MIRENA [Suspect]
     Indication: PRODUCT USED FOR UNKNOWN INDICATION
     Dosage: CONTINUOUS
     Route: 015
     Dates: start: 20071101
  3. MIRENA [Suspect]
     Indication: MENORRHAGIA
     Dosage: 20 MCG/24HR, CONT
     Route: 015
     Dates: start: 20090127
  4. MIRENA [Suspect]
     Indication: MIGRAINE

REACTIONS (4)
  - METRORRHAGIA [None]
  - VULVOVAGINAL DISCOMFORT [None]
  - DIZZINESS [None]
  - MENORRHAGIA [None]
